FAERS Safety Report 7556679-9 (Version None)
Quarter: 2011Q2

REPORT INFORMATION
  Report Type: 
  Country: None (occurrence: None)
  Receive Date: 20110609
  Receipt Date: 20110524
  Transmission Date: 20111010
  Serious: Yes (Death)
  Sender: FDA-Public Use
  Company Number: B0722225A

PATIENT
  Sex: 0

DRUGS (4)
  1. TEMOZOLOMIDE [Suspect]
  2. TOPOTECAN HYDROCHLORIDE [Suspect]
     Indication: GLIOBLASTOMA MULTIFORME
     Dosage: 1.5 MG M2 / ORAL
     Route: 048
  3. RADIOTHERAPY (FORMULATION UNKNOWN) (RADIOTHERAPY) [Suspect]
  4. BEVACIZUMAB (FORMULATION UNKNOWN) (BEVACIZUMAB) [Suspect]
     Indication: GLIOBLASTOMA MULTIFORME

REACTIONS (1)
  - CEREBRAL HAEMORRHAGE [None]
